FAERS Safety Report 10735345 (Version 1)
Quarter: 2015Q1

REPORT INFORMATION
  Report Type: Spontaneous
  Country: US (occurrence: US)
  Receive Date: 20150125
  Receipt Date: 20150125
  Transmission Date: 20150721
  Serious: Yes (Death, Hospitalization)
  Sender: FDA-Public Use
  Company Number: US-JNJFOC-20150110367

PATIENT
  Age: 22 Year
  Sex: Female

DRUGS (1)
  1. APAP [Suspect]
     Active Substance: ACETAMINOPHEN
     Indication: COMPLETED SUICIDE
     Route: 048
     Dates: start: 20060926

REACTIONS (7)
  - Transaminases increased [Fatal]
  - Prothrombin time prolonged [Fatal]
  - Intentional overdose [Fatal]
  - Acidosis [Fatal]
  - Hypotension [Fatal]
  - Coma [Fatal]
  - Gastrointestinal haemorrhage [Fatal]

NARRATIVE: CASE EVENT DATE: 20060926
